FAERS Safety Report 4695153-4 (Version None)
Quarter: 2005Q2

REPORT INFORMATION
  Report Type: 
  Country: None (occurrence: None)
  Receive Date: 20050617
  Receipt Date: 20050601
  Transmission Date: 20051028
  Serious: Yes (Death, Life-Threatening, Hospitalization)
  Sender: FDA-Public Use
  Company Number: US133663

PATIENT
  Age: 65 Year
  Sex: Female
  Weight: 28 kg

DRUGS (4)
  1. ENBREL [Suspect]
     Indication: RHEUMATOID ARTHRITIS
     Dosage: 50 MG, 1 IN 1 WEEKS, SC
     Route: 058
     Dates: start: 20050407, end: 20050418
  2. LOSARTAN POTASSIUM [Concomitant]
  3. OMEPRAZOLE [Concomitant]
  4. PREDNISONE [Concomitant]

REACTIONS (11)
  - CONDITION AGGRAVATED [None]
  - DEPRESSED LEVEL OF CONSCIOUSNESS [None]
  - DIZZINESS [None]
  - FALL [None]
  - HALLUCINATION [None]
  - HERPES ZOSTER [None]
  - MALAISE [None]
  - PYELONEPHRITIS [None]
  - PYREXIA [None]
  - RENAL FAILURE CHRONIC [None]
  - RESTLESSNESS [None]
